FAERS Safety Report 7417509-9 (Version None)
Quarter: 2011Q2

REPORT INFORMATION
  Report Type: 
  Country: None (occurrence: None)
  Receive Date: 20110415
  Receipt Date: 20110330
  Transmission Date: 20111010
  Serious: Yes (Hospitalization)
  Sender: FDA-Public Use
  Company Number: FR-PFIZER INC-2008073890

PATIENT
  Age: 90 Year
  Sex: Female

DRUGS (11)
  1. STILNOX [Suspect]
     Dosage: 10 MG, 1X/DAY
     Route: 048
     Dates: end: 20080103
  2. LASIX [Concomitant]
     Route: 048
  3. AMLODIPINE BESYLATE [Suspect]
     Dosage: 5 MG, 1X/DAY
     Route: 048
     Dates: end: 20080103
  4. CORDARONE [Suspect]
     Route: 048
     Dates: end: 20080103
  5. TRIMEBUTINE [Suspect]
     Dosage: 3 DF, 1X/DAY
     Route: 048
     Dates: end: 20080103
  6. FORLAX [Suspect]
     Dosage: 2 DF, 1X/DAY
     Route: 048
     Dates: end: 20080103
  7. DIFFU K [Concomitant]
     Route: 048
  8. LANTUS [Concomitant]
     Route: 058
  9. MIANSERIN HYDROCHLORIDE [Suspect]
     Dosage: 1 DF, 1X/DAY
     Route: 048
     Dates: end: 20080103
  10. DUPHALAC [Suspect]
     Dosage: 3 DF, 1X/DAY
     Route: 048
     Dates: end: 20080103
  11. NITRODERM [Concomitant]
     Route: 062

REACTIONS (1)
  - PULMONARY FIBROSIS [None]
